FAERS Safety Report 7946692 (Version 4)
Quarter: 2013Q2

REPORT INFORMATION
  Report Type: Report from Study
  Country: US (occurrence: US)
  Receive Date: 20110516
  Receipt Date: 20130408
  Transmission Date: 20140414
  Serious: Yes (Life-Threatening, Hospitalization)
  Sender: FDA-Public Use
  Company Number: PHHO2011US08178

PATIENT
  Age: 52 Year
  Sex: Male
  Weight: 85.6 kg

DRUGS (3)
  1. CERTICAN [Suspect]
     Indication: RENAL TRANSPLANT
     Dosage: 0.75 MG, BID
     Route: 048
     Dates: start: 20110504, end: 20110523
  2. PROGRAF [Concomitant]
     Indication: RENAL TRANSPLANT
     Dosage: 2 MG, BID
     Route: 048
     Dates: start: 20110504, end: 20110523
  3. THYMOGLOBULINE [Concomitant]
     Indication: RENAL TRANSPLANT
     Dosage: 1.5 MG/KG, QD
     Dates: start: 20110504

REACTIONS (3)
  - Renal tubular necrosis [Recovered/Resolved]
  - Ureteric stenosis [Recovered/Resolved]
  - Ureteric obstruction [Recovered/Resolved]
